FAERS Safety Report 5700659-2 (Version None)
Quarter: 2008Q2

REPORT INFORMATION
  Report Type: 
  Country: None (occurrence: None)
  Receive Date: 20080409
  Receipt Date: 20080409
  Transmission Date: 20081010
  Serious: Yes (Other)
  Sender: FDA-Public Use
  Company Number: None

PATIENT
  Sex: Female
  Weight: 63.5036 kg

DRUGS (1)
  1. SINGULAIR [Suspect]
     Indication: ASTHMA
     Dosage: 10MG 1/DAY PO
     Route: 048
     Dates: start: 19990606, end: 19990906

REACTIONS (6)
  - BACK PAIN [None]
  - DISCOMFORT [None]
  - INSOMNIA [None]
  - MUSCULOSKELETAL CHEST PAIN [None]
  - MYALGIA [None]
  - PAINFUL RESPIRATION [None]
